FAERS Safety Report 12080262 (Version 2)
Quarter: 2016Q1

REPORT INFORMATION
  Report Type: Spontaneous
  Country: US (occurrence: US)
  Receive Date: 20160216
  Receipt Date: 20160219
  Transmission Date: 20160526
  Serious: Yes (Hospitalization, Other)
  Sender: FDA-Public Use
  Company Number: US-MEDTRONIC-1047880

PATIENT
  Age: 18 Year
  Sex: Male

DRUGS (1)
  1. BACLOFEN UNKNOWN [Suspect]
     Active Substance: BACLOFEN
     Indication: MUSCLE SPASTICITY
     Route: 037

REACTIONS (8)
  - Agitation [Unknown]
  - Dyskinesia [Unknown]
  - Muscle spasms [Unknown]
  - Muscle spasticity [Unknown]
  - Unevaluable event [Unknown]
  - Hyperhidrosis [Unknown]
  - Device alarm issue [None]
  - Overdose [Recovered/Resolved]

NARRATIVE: CASE EVENT DATE: 2011
